FAERS Safety Report 13628211 (Version 1)
Quarter: 2017Q2

REPORT INFORMATION
  Report Type: Spontaneous
  Country: CH (occurrence: CH)
  Receive Date: 20170608
  Receipt Date: 20170608
  Transmission Date: 20170830
  Serious: Yes (Hospitalization)
  Sender: FDA-Public Use
  Company Number: CH-TEVA-773958ISR

PATIENT
  Age: 76 Year
  Sex: Female

DRUGS (2)
  1. LAMOTRINE MEPHA [Suspect]
     Active Substance: LAMOTRIGINE
     Indication: EPILEPSY
     Dosage: INCREASED FROM 200 TO 275 PRIOR HOSPITALIZATION
     Route: 048
     Dates: end: 20170429
  2. ORFIRIL [Suspect]
     Active Substance: VALPROIC ACID
     Indication: EPILEPSY
     Dosage: REDUCED FROM 1800 TO 900 PRIOR HOSPITALISATION
     Route: 048
     Dates: end: 20170429

REACTIONS (10)
  - Choreoathetosis [Recovered/Resolved]
  - Gait disturbance [Recovered/Resolved]
  - Cognitive disorder [Recovered/Resolved]
  - Disorientation [Recovered/Resolved]
  - Toxicity to various agents [None]
  - Dysstasia [Recovered/Resolved]
  - Drug level decreased [None]
  - Subdural haematoma [None]
  - Fall [None]
  - Tremor [None]

NARRATIVE: CASE EVENT DATE: 201704
